FAERS Safety Report 6131911-7 (Version None)
Quarter: 2009Q1

REPORT INFORMATION
  Report Type: 
  Country: None (occurrence: None)
  Receive Date: 20090325
  Receipt Date: 20090303
  Transmission Date: 20090719
  Serious: Yes (Other)
  Sender: FDA-Public Use
  Company Number: US-PFIZER INC-2009179418

PATIENT
  Sex: Male
  Weight: 83.914 kg

DRUGS (10)
  1. XALATAN [Suspect]
     Indication: GLAUCOMA
     Dosage: UNK
  2. RAMIPRIL [Concomitant]
     Dosage: UNK
  3. NEURONTIN [Concomitant]
  4. ULTRAM [Concomitant]
     Dosage: UNK
  5. PANTOPRAZOLE [Concomitant]
     Dosage: UNK
  6. CRESTOR [Concomitant]
     Dosage: UNK
  7. VICODIN [Concomitant]
  8. ADVAIR HFA [Concomitant]
     Dosage: UNK
  9. ALBUTEROL [Concomitant]
     Dosage: UNK
  10. VITAMINS [Concomitant]
     Dosage: UNK

REACTIONS (9)
  - ASTHMA [None]
  - BODY HEIGHT DECREASED [None]
  - CATARACT OPERATION [None]
  - CHRONIC OBSTRUCTIVE PULMONARY DISEASE [None]
  - GLAUCOMA [None]
  - HERPES ZOSTER [None]
  - INTRAOCULAR PRESSURE INCREASED [None]
  - MYOCARDIAL INFARCTION [None]
  - PAIN [None]
